FAERS Safety Report 5663644-5 (Version None)
Quarter: 2008Q1

REPORT INFORMATION
  Report Type: 
  Country: None (occurrence: None)
  Receive Date: 20080307
  Receipt Date: 20080221
  Transmission Date: 20080703
  Serious: Yes (Other)
  Sender: FDA-Public Use
  Company Number: 2007S1013274

PATIENT
  Age: 27 Year
  Sex: Male

DRUGS (9)
  1. LOFEPRAMINE (LOFEPRAMINE) [Suspect]
     Indication: DRUG USE FOR UNKNOWN INDICATION
  2. SEROXAT/00830801/ (PAROXETINE) [Suspect]
     Indication: PHOBIA
     Dates: start: 19990901, end: 20021201
  3. FLUOXETINE [Concomitant]
  4. LITHIUM CARBONATE [Concomitant]
  5. METHYLENEDIOXYMETHAMPHETAMINE [Concomitant]
  6. COCAINE [Concomitant]
  7. CODEINE SUL TAB [Suspect]
  8. IBUPROFEN [Suspect]
     Dates: start: 20020820
  9. IBUPROFEN [Suspect]
     Dates: start: 20020820

REACTIONS (10)
  - AGGRESSION [None]
  - CONSTIPATION [None]
  - DEPRESSION [None]
  - DRUG WITHDRAWAL SYNDROME [None]
  - DRY MOUTH [None]
  - SEXUAL DYSFUNCTION [None]
  - SOCIAL PHOBIA [None]
  - SUICIDAL IDEATION [None]
  - SUICIDE ATTEMPT [None]
  - VISION BLURRED [None]
